FAERS Safety Report 5815191-5 (Version None)
Quarter: 2008Q3

REPORT INFORMATION
  Report Type: 
  Country: None (occurrence: None)
  Receive Date: 20080718
  Receipt Date: 20080708
  Transmission Date: 20090109
  Serious: Yes (Death, Hospitalization)
  Sender: FDA-Public Use
  Company Number: US-KINGPHARMUSA00001-K200800782

PATIENT

DRUGS (6)
  1. ALTACE [Suspect]
     Dosage: 2.5 MG, BID
     Route: 048
     Dates: end: 20080415
  2. LASIX [Suspect]
     Dosage: 60 MG, QD
     Route: 048
     Dates: end: 20080415
  3. ATHYMIL [Suspect]
     Dosage: 30 MG, QD
     Route: 048
     Dates: end: 20080415
  4. CHRONADALATE [Suspect]
     Dosage: 30 MG, QD
     Route: 048
     Dates: end: 20080415
  5. STILNOX                            /00914901/ [Suspect]
     Dosage: 10 MG, QD
     Route: 048
     Dates: end: 20080415
  6. OROCAL D(3) [Concomitant]
     Dosage: 1 DF, QD
     Route: 048
     Dates: end: 20080415

REACTIONS (9)
  - BUNDLE BRANCH BLOCK RIGHT [None]
  - CARDIOGENIC SHOCK [None]
  - ECCHYMOSIS [None]
  - FALL [None]
  - HAEMATOMA [None]
  - MUSCULAR WEAKNESS [None]
  - PAIN IN EXTREMITY [None]
  - RENAL FAILURE [None]
  - RHABDOMYOLYSIS [None]
